FAERS Safety Report 15028409 (Version 3)
Quarter: 2018Q3

REPORT INFORMATION
  Report Type: Spontaneous
  Country: US (occurrence: US)
  Receive Date: 20180619
  Receipt Date: 20180831
  Transmission Date: 20181010
  Serious: Yes (Other)
  Sender: FDA-Public Use
  Company Number: US-BAYER-2018-113663

PATIENT
  Sex: Female

DRUGS (6)
  1. MULTIHANCE [Suspect]
     Active Substance: GADOBENATE DIMEGLUMINE
     Indication: NUCLEAR MAGNETIC RESONANCE IMAGING
     Route: 042
  2. OPTIMARK [Suspect]
     Active Substance: GADOVERSETAMIDE
     Indication: ANGIOGRAM
  3. MULTIHANCE [Suspect]
     Active Substance: GADOBENATE DIMEGLUMINE
     Indication: ANGIOGRAM
  4. MAGNEVIST [Suspect]
     Active Substance: GADOPENTETATE DIMEGLUMINE
     Indication: NUCLEAR MAGNETIC RESONANCE IMAGING
     Dosage: UNK
     Route: 042
  5. MAGNEVIST [Suspect]
     Active Substance: GADOPENTETATE DIMEGLUMINE
     Indication: ANGIOGRAM
  6. OPTIMARK [Suspect]
     Active Substance: GADOVERSETAMIDE
     Indication: NUCLEAR MAGNETIC RESONANCE IMAGING
     Route: 042

REACTIONS (33)
  - Renal injury [None]
  - Asthenia [None]
  - Body temperature decreased [None]
  - Alopecia [None]
  - Anxiety [None]
  - Confusional state [None]
  - Injury [None]
  - Contrast media deposition [Not Recovered/Not Resolved]
  - Thinking abnormal [None]
  - Mobility decreased [None]
  - Contrast media toxicity [None]
  - Tremor [None]
  - Arthralgia [None]
  - Weight decreased [None]
  - Emotional distress [Not Recovered/Not Resolved]
  - Nontherapeutic agent urine positive [None]
  - Skin fibrosis [None]
  - Hypoglycaemia [None]
  - Pain [None]
  - Rash generalised [None]
  - Lymphadenitis [None]
  - Osteoporosis [None]
  - Inflammation [None]
  - Fatigue [None]
  - Muscle spasms [None]
  - Gadolinium deposition disease [None]
  - Hypoaesthesia [None]
  - Mass [None]
  - Fibrosis [None]
  - Burning sensation [None]
  - Paraesthesia [None]
  - Anxiety [Not Recovered/Not Resolved]
  - Anhedonia [None]
